FAERS Safety Report 25617186 (Version 1)
Quarter: 2025Q3

REPORT INFORMATION
  Report Type: Spontaneous
  Country: US (occurrence: None)
  Receive Date: 20250728
  Receipt Date: 20250728
  Transmission Date: 20251020
  Serious: Yes (Death)
  Sender: FDA-CTU
  Company Number: None

PATIENT
  Age: 81 Year
  Sex: Male
  Weight: 84.5 kg

DRUGS (11)
  1. POMALYST [Suspect]
     Active Substance: POMALIDOMIDE
     Indication: Plasma cell myeloma
     Dosage: FREQUENCY : DAILY;?
     Route: 048
     Dates: start: 20250315
  2. ACYCLOVIR [Concomitant]
     Active Substance: ACYCLOVIR
  3. EYLEA [Concomitant]
     Active Substance: AFLIBERCEPT
  4. AMIODARONE [Concomitant]
     Active Substance: AMIODARONE
  5. CLINDAMYCIN [Concomitant]
     Active Substance: CLINDAMYCIN
  6. SENNA PLUS [Concomitant]
     Active Substance: DOCUSATE SODIUM\SENNOSIDES\SENNOSIDES A AND B
  7. FINASTERIDE [Concomitant]
     Active Substance: FINASTERIDE
  8. FUROSEMIDE [Concomitant]
     Active Substance: FUROSEMIDE
  9. MINERALS\VITAMINS [Concomitant]
     Active Substance: MINERALS\VITAMINS
  10. PROBIOTICS NOS [Concomitant]
     Active Substance: PROBIOTICS NOS
  11. LINZESS [Concomitant]
     Active Substance: LINACLOTIDE

REACTIONS (1)
  - Death [None]

NARRATIVE: CASE EVENT DATE: 20250713
